FAERS Safety Report 14252641 (Version 1)
Quarter: 2017Q4

REPORT INFORMATION
  Report Type: Spontaneous
  Country: US (occurrence: US)
  Receive Date: 20171205
  Receipt Date: 20171205
  Transmission Date: 20180321
  Serious: No
  Sender: FDA-Public Use
  Company Number: US-TEVA-733576ACC

PATIENT
  Age: 85 Year
  Sex: Male
  Weight: 86 kg

DRUGS (11)
  1. BUDESONIDE. [Suspect]
     Active Substance: BUDESONIDE
     Indication: CHRONIC OBSTRUCTIVE PULMONARY DISEASE
     Dosage: 0.5MG/2ML; DOSE:2
  2. FOLIC ACID. [Concomitant]
     Active Substance: FOLIC ACID
  3. PREDNISONE. [Concomitant]
     Active Substance: PREDNISONE
  4. METHOTREXATE. [Concomitant]
     Active Substance: METHOTREXATE
  5. BROBANA [Concomitant]
  6. FUROSEMIDE. [Concomitant]
     Active Substance: FUROSEMIDE
  7. BUDESONIDE. [Suspect]
     Active Substance: BUDESONIDE
     Indication: SKIN ODOUR ABNORMAL
  8. BUDESONIDE. [Concomitant]
     Active Substance: BUDESONIDE
  9. COUMADIN [Concomitant]
     Active Substance: WARFARIN SODIUM
  10. IBUPROFEN. [Concomitant]
     Active Substance: IBUPROFEN
  11. OMEPRAZOLE. [Concomitant]
     Active Substance: OMEPRAZOLE

REACTIONS (2)
  - Parosmia [Not Recovered/Not Resolved]
  - Nasal odour [Not Recovered/Not Resolved]

NARRATIVE: CASE EVENT DATE: 20161225
